FAERS Safety Report 5506480-2 (Version None)
Quarter: 2007Q4

REPORT INFORMATION
  Report Type: 
  Country: None (occurrence: None)
  Receive Date: 20071105
  Receipt Date: 20071026
  Transmission Date: 20080405
  Serious: Yes (Life-Threatening, Hospitalization)
  Sender: FDA-Public Use
  Company Number: JP-ASTRAZENECA-2007SE05466

PATIENT
  Age: 16199 Day
  Sex: Female
  Weight: 49 kg

DRUGS (12)
  1. BLOPRESS [Suspect]
     Indication: HYPERTENSION
     Route: 048
     Dates: start: 20051104, end: 20070315
  2. BLOPRESS [Suspect]
     Route: 048
     Dates: start: 20070316, end: 20070930
  3. RHEUMATREX [Suspect]
     Indication: RHEUMATOID ARTHRITIS
     Route: 048
     Dates: start: 20041119, end: 20070922
  4. RHEUMATREX [Suspect]
     Route: 048
     Dates: start: 20071009
  5. NABOAL SR [Suspect]
     Indication: RHEUMATOID ARTHRITIS
     Route: 048
     Dates: start: 20040427, end: 20070930
  6. METHOTREXATE [Suspect]
     Indication: RHEUMATOID ARTHRITIS
     Route: 048
     Dates: end: 20040725
  7. PREDONINE [Concomitant]
     Indication: RHEUMATOID ARTHRITIS
     Route: 048
     Dates: start: 20041118, end: 20070930
  8. PREDONINE [Concomitant]
     Route: 048
     Dates: start: 20071009
  9. SELBEX [Concomitant]
     Indication: PROPHYLAXIS AGAINST GASTROINTESTINAL ULCER
     Route: 048
     Dates: end: 20070930
  10. SELBEX [Concomitant]
     Route: 048
     Dates: start: 20071009
  11. LYSOZYME HYDROCHLORIDE [Concomitant]
     Indication: OTITIS MEDIA
     Route: 048
     Dates: start: 20070415, end: 20070930
  12. HUMIRA [Concomitant]
     Indication: RHEUMATOID ARTHRITIS
     Route: 058
     Dates: start: 20060615, end: 20070913

REACTIONS (3)
  - RENAL FAILURE ACUTE [None]
  - UPPER RESPIRATORY TRACT INFECTION [None]
  - URINARY TRACT INFECTION [None]
